FAERS Safety Report 6569560-9 (Version None)
Quarter: 2010Q1

REPORT INFORMATION
  Report Type: 
  Country: None (occurrence: None)
  Receive Date: 20100204
  Receipt Date: 20100126
  Transmission Date: 20100710
  Serious: Yes (Hospitalization)
  Sender: FDA-Public Use
  Company Number: JP-ASTRAZENECA-2010SE04792

PATIENT
  Sex: Female

DRUGS (3)
  1. SEROQUEL [Suspect]
     Route: 048
  2. CERCINE [Suspect]
     Route: 048
  3. RIVOTRIL [Suspect]
     Route: 048

REACTIONS (2)
  - CONFUSIONAL STATE [None]
  - INTENTIONAL DRUG MISUSE [None]
